FAERS Safety Report 7319184-0 (Version None)
Quarter: 2011Q1

REPORT INFORMATION
  Report Type: 
  Country: None (occurrence: None)
  Receive Date: 20110228
  Receipt Date: 20110223
  Transmission Date: 20110831
  Serious: Yes (Other)
  Sender: FDA-Public Use
  Company Number: US-SANOFI-AVENTIS-2011SA011730

PATIENT
  Sex: Male

DRUGS (1)
  1. DDAVP [Suspect]
     Route: 045

REACTIONS (3)
  - BLADDER DISORDER [None]
  - PRODUCT QUALITY ISSUE [None]
  - PROSTATIC DISORDER [None]
